FAERS Safety Report 5654758-4 (Version None)
Quarter: 2008Q1

REPORT INFORMATION
  Report Type: 
  Country: None (occurrence: None)
  Receive Date: 20080219
  Receipt Date: 20071019
  Transmission Date: 20080703
  Serious: No
  Sender: FDA-Public Use
  Company Number: WAES 0710USA03954

PATIENT
  Age: 67 Year
  Sex: Male

DRUGS (7)
  1. JANUVIA [Suspect]
     Indication: TYPE 2 DIABETES MELLITUS
     Dosage: 100 MG/DAILY/PO
     Route: 048
     Dates: start: 20070802, end: 20071019
  2. AVANDIA [Concomitant]
  3. GLUCOTROL XL [Concomitant]
  4. LEVOXYL [Concomitant]
  5. PRILOSEC [Concomitant]
  6. VYTORIN [Concomitant]
  7. ZOLOFT [Concomitant]

REACTIONS (1)
  - CONSTIPATION [None]
